FAERS Safety Report 7153401-5 (Version None)
Quarter: 2010Q4

REPORT INFORMATION
  Report Type: 
  Country: None (occurrence: None)
  Receive Date: 20101213
  Receipt Date: 20101207
  Transmission Date: 20110411
  Serious: Yes (Other)
  Sender: FDA-Public Use
  Company Number: A0795491A

PATIENT
  Age: 67 Year
  Sex: Female

DRUGS (3)
  1. RELENZA [Suspect]
     Dosage: 2PUFF TWICE PER DAY
     Route: 055
     Dates: start: 20090316, end: 20090320
  2. LISINOPRIL [Concomitant]
  3. LIPITOR [Concomitant]

REACTIONS (1)
  - ANOSMIA [None]
